FAERS Safety Report 5241895-1 (Version None)
Quarter: 2007Q1

REPORT INFORMATION
  Report Type: 
  Country: None (occurrence: None)
  Receive Date: 20070220
  Receipt Date: 20070214
  Transmission Date: 20070707
  Serious: Yes (Other)
  Sender: FDA-Public Use
  Company Number: GB-SHR-GB-2007-005286

PATIENT
  Sex: Female

DRUGS (7)
  1. MIRENA [Suspect]
     Dosage: 20 A?G/DAY, CONT
     Route: 015
  2. SEROXAT ^CIBA-GEIGY^ [Suspect]
     Indication: DEPRESSION
     Dosage: 20 MG, 1X/DAY
     Dates: start: 19991001, end: 20000701
  3. SEROXAT ^CIBA-GEIGY^ [Suspect]
     Dosage: 20 MG, 1X/DAY
     Dates: start: 20001001, end: 20010301
  4. SEROXAT ^CIBA-GEIGY^ [Suspect]
     Dosage: 30 MG, 1X/DAY
     Dates: start: 20010301, end: 20030601
  5. SEROXAT ^CIBA-GEIGY^ [Suspect]
     Dosage: 20 MG, 1X/DAY
     Dates: start: 20030601, end: 20040701
  6. SEROXAT ^CIBA-GEIGY^ [Suspect]
     Dosage: 10 MG, 1X/DAY
     Dates: start: 20040801
  7. SEROXAT ^CIBA-GEIGY^ [Suspect]
     Dosage: 2.5 MG, 1X/DAY

REACTIONS (5)
  - DEPRESSION [None]
  - DRUG WITHDRAWAL SYNDROME [None]
  - MOOD ALTERED [None]
  - PANIC ATTACK [None]
  - PARAESTHESIA [None]
